FAERS Safety Report 18088777 (Version 1)
Quarter: 2020Q3

REPORT INFORMATION
  Report Type: Spontaneous
  Country: CN (occurrence: CN)
  Receive Date: 20200729
  Receipt Date: 20200729
  Transmission Date: 20201103
  Serious: Yes (Other)
  Sender: FDA-Public Use
  Company Number: CN-PFIZER INC-2020284265

PATIENT
  Age: 30 Year
  Sex: Male
  Weight: 72 kg

DRUGS (1)
  1. EFEXOR XR [Suspect]
     Active Substance: VENLAFAXINE HYDROCHLORIDE
     Indication: DEPRESSION
     Dosage: 225 MG, 1X/DAY
     Route: 048
     Dates: start: 20200310, end: 20200414

REACTIONS (2)
  - Unresponsive to stimuli [Recovering/Resolving]
  - Vision blurred [Recovering/Resolving]

NARRATIVE: CASE EVENT DATE: 20200403
